FAERS Safety Report 10234921 (Version 1)
Quarter: 2014Q2

REPORT INFORMATION
  Report Type: Spontaneous
  Country: US (occurrence: None)
  Receive Date: 20140520
  Receipt Date: 20140520
  Transmission Date: 20141212
  Serious: No
  Sender: FDA-Public Use
  Company Number: 2013PL000174

PATIENT
  Sex: Female

DRUGS (1)
  1. AZATHIOPRINE (AZATHIOPRINE) [Suspect]
     Indication: ORGAN DONOR
     Route: 048

REACTIONS (3)
  - Skin cancer [None]
  - Basal cell carcinoma [None]
  - Squamous cell carcinoma of skin [None]
